FAERS Safety Report 12183148 (Version 4)
Quarter: 2016Q3

REPORT INFORMATION
  Report Type: Report from Study
  Country: US (occurrence: US)
  Receive Date: 20160316
  Receipt Date: 20160720
  Transmission Date: 20161109
  Serious: Yes (Hospitalization)
  Sender: FDA-Public Use
  Company Number: US-BIOGEN-2015BI00161401

PATIENT
  Age: 59 Year
  Sex: Female
  Weight: 88.53 kg

DRUGS (17)
  1. FLUTICASONE/SALMETEROL [Concomitant]
     Active Substance: FLUTICASONE PROPIONATE\SALMETEROL XINAFOATE
     Route: 045
  2. FENOFIBRATE MICRONIZED [Concomitant]
     Route: 048
  3. CALCIUM/CHOLECALCIFEROL [Concomitant]
     Route: 048
  4. FENOFIBRATE MICRONIZED [Concomitant]
     Route: 048
  5. FLAXSEED [Concomitant]
     Active Substance: FLAX SEED
  6. TECFIDERA [Suspect]
     Active Substance: DIMETHYL FUMARATE
     Route: 048
     Dates: start: 20150222
  7. ESOMEPRAZOLE [Concomitant]
     Active Substance: ESOMEPRAZOLE
     Route: 048
  8. OLMESARTAN [Concomitant]
     Active Substance: OLMESARTAN
     Route: 048
  9. ALBUTEROL. [Concomitant]
     Active Substance: ALBUTEROL
     Indication: DYSPNOEA
  10. CHOLECALCIFEROL [Concomitant]
     Active Substance: CHOLECALCIFEROL
     Route: 048
  11. TECFIDERA [Suspect]
     Active Substance: DIMETHYL FUMARATE
     Indication: MULTIPLE SCLEROSIS
     Route: 048
     Dates: start: 20150215, end: 20150221
  12. LACTOBACILLUS RHAMNOSUS GG [Concomitant]
     Route: 048
  13. ESTER-C [Concomitant]
     Active Substance: CALCIUM\VITAMINS
     Route: 048
  14. FEXOFENADINE [Concomitant]
     Active Substance: FEXOFENADINE\FEXOFENADINE HYDROCHLORIDE
     Route: 048
  15. SIMVASTATIN. [Concomitant]
     Active Substance: SIMVASTATIN
     Route: 048
  16. TRIAMCINOLONE [Concomitant]
     Active Substance: TRIAMCINOLONE
  17. BUDESONIDE. [Concomitant]
     Active Substance: BUDESONIDE
     Indication: ASTHMA
     Route: 045

REACTIONS (1)
  - Obstructive uropathy [Recovered/Resolved]

NARRATIVE: CASE EVENT DATE: 20150803
